FAERS Safety Report 7509381-3 (Version None)
Quarter: 2011Q2

REPORT INFORMATION
  Report Type: 
  Country: None (occurrence: None)
  Receive Date: 20110527
  Receipt Date: 20110428
  Transmission Date: 20111010
  Serious: No
  Sender: FDA-Public Use
  Company Number: US-BAYER-2011-038291

PATIENT
  Age: 60 Year
  Sex: Male
  Weight: 79 kg

DRUGS (3)
  1. PREDNISONE [Concomitant]
  2. ALEVE (CAPLET) [Suspect]
     Dosage: 440 MG, BID, BOTTLE COUNT 130S
     Route: 048
  3. ALEVE (CAPLET) [Suspect]
     Indication: MYALGIA
     Dosage: 440 MG, BID, BOTTLE COUNT 100S
     Route: 048

REACTIONS (1)
  - RASH PRURITIC [None]
